FAERS Safety Report 14322136 (Version 9)
Quarter: 2020Q3

REPORT INFORMATION
  Report Type: Report from Study
  Country: AU (occurrence: AU)
  Receive Date: 20171225
  Receipt Date: 20180227
  Transmission Date: 20201105
  Serious: Yes (Hospitalization)
  Sender: FDA-Public Use
  Company Number: AU-ROCHE-2039988

PATIENT
  Age: 72 Year
  Sex: Female
  Weight: 88.1 kg

DRUGS (65)
  1. LOPERAMIDE [Concomitant]
     Active Substance: LOPERAMIDE
     Indication: DIARRHOEA
     Route: 065
     Dates: start: 20171116
  2. CEPHALEXIN. [Concomitant]
     Active Substance: CEPHALEXIN
     Indication: RESPIRATORY TRACT INFECTION
     Route: 065
     Dates: start: 20171213, end: 20171218
  3. NITROFURANTOIN. [Concomitant]
     Active Substance: NITROFURANTOIN
     Indication: ENTEROCOCCAL INFECTION
     Route: 065
     Dates: start: 20171229, end: 20180102
  4. CIPROFLOXACIN. [Concomitant]
     Active Substance: CIPROFLOXACIN
     Indication: URINARY TRACT INFECTION
     Dosage: EMPPIRICAL ANTIBIOTIC FOR URINARY TRACT INFECTION
     Route: 065
     Dates: start: 20171203, end: 20171204
  5. ASPIRIN. [Concomitant]
     Active Substance: ASPIRIN
     Indication: OSTEOARTHRITIS
     Route: 065
     Dates: start: 201612, end: 20171220
  6. IPRATROPIUM [Concomitant]
     Active Substance: IPRATROPIUM
     Indication: ASTHMA
     Route: 065
     Dates: start: 2013
  7. ANGININE [Concomitant]
     Indication: ANGINA PECTORIS
     Route: 065
     Dates: start: 201612
  8. BRICANYL [Concomitant]
     Active Substance: TERBUTALINE SULFATE
     Indication: ASTHMA
     Route: 065
     Dates: start: 200712
  9. FILGRASTIM [Concomitant]
     Active Substance: FILGRASTIM
     Route: 065
     Dates: start: 20171220, end: 20171224
  10. MIDAZOLAM HYDROCHLORIDE. [Concomitant]
     Active Substance: MIDAZOLAM HYDROCHLORIDE
     Indication: SEDATION
     Route: 065
     Dates: start: 20171205, end: 20171205
  11. LORATADINE. [Concomitant]
     Active Substance: LORATADINE
     Indication: PRURITUS
     Route: 065
     Dates: start: 20171219, end: 20171219
  12. LIGNOCAINE VISCOUS [Concomitant]
     Indication: PAIN
  13. VENETOCLAX. [Suspect]
     Active Substance: VENETOCLAX
     Indication: DIFFUSE LARGE B-CELL LYMPHOMA
     Dosage: 400, 600, OR 800 MG (FOR DLBCL) ON DAYS 1 TO 21 OF EACH 21?DAY CYCLE?MOST RECENT DOSE PRIOR TO CHEST
     Route: 048
     Dates: start: 20171116
  14. NEBIVOLOL. [Suspect]
     Active Substance: NEBIVOLOL
     Indication: HYPERTENSION
     Route: 065
     Dates: start: 201702, end: 20180129
  15. CYMBALTA [Concomitant]
     Active Substance: DULOXETINE HYDROCHLORIDE
     Indication: FIBROMYALGIA
     Route: 065
     Dates: start: 201707
  16. TRAMADOL. [Concomitant]
     Active Substance: TRAMADOL
     Indication: PAIN
     Route: 065
     Dates: start: 20170928, end: 201711
  17. ROSUVASTATIN. [Concomitant]
     Active Substance: ROSUVASTATIN
     Indication: HYPERCHOLESTEROLAEMIA
     Route: 065
     Dates: start: 2013
  18. EFORMOTEROL [Concomitant]
     Active Substance: FORMOTEROL
     Indication: ASTHMA
     Route: 065
     Dates: start: 201712
  19. FENTANYL. [Concomitant]
     Active Substance: FENTANYL
     Indication: STOMATITIS
     Dosage: ORAL MUCOSITIS PAIN
     Route: 065
     Dates: start: 20171221, end: 20171222
  20. MAGNESIUM SULFATE. [Concomitant]
     Active Substance: MAGNESIUM SULFATE
     Dosage: 10 MMOL IN 100ML NORMAL SALINE
     Route: 065
     Dates: start: 20171218, end: 20171219
  21. PROMETHAZINE [Concomitant]
     Active Substance: PROMETHAZINE HYDROCHLORIDE
     Indication: PRURITUS
     Route: 065
     Dates: start: 20171201, end: 20171201
  22. POTASSIUM CHLORIDE. [Concomitant]
     Active Substance: POTASSIUM CHLORIDE
     Indication: HYPOKALAEMIA
     Dosage: 40 MMOL IN 1000ML NORMAL SALINE
     Route: 065
     Dates: start: 20171219, end: 20171219
  23. ONDANSETRON [Concomitant]
     Active Substance: ONDANSETRON
     Indication: NAUSEA
     Route: 065
     Dates: start: 20171219, end: 20171219
  24. CRESTOR [Concomitant]
     Active Substance: ROSUVASTATIN CALCIUM
     Indication: GASTROOESOPHAGEAL REFLUX DISEASE
     Route: 065
     Dates: start: 2011
  25. FENTANYL. [Concomitant]
     Active Substance: FENTANYL
     Indication: SEDATION
     Route: 065
     Dates: start: 20171205, end: 20171205
  26. MAGNESIUM SULFATE. [Concomitant]
     Active Substance: MAGNESIUM SULFATE
     Route: 065
     Dates: start: 20171223, end: 20171223
  27. LORATADINE. [Concomitant]
     Active Substance: LORATADINE
     Indication: RASH
  28. LIGNOCAINE VISCOUS [Concomitant]
     Indication: STOMATITIS
     Route: 065
     Dates: start: 20171219, end: 20171219
  29. VALSARTAN. [Concomitant]
     Active Substance: VALSARTAN
     Indication: CARDIOMYOPATHY
     Route: 065
     Dates: start: 201612
  30. PANTOPRAZOLE [Concomitant]
     Active Substance: PANTOPRAZOLE
     Indication: GASTROOESOPHAGEAL REFLUX DISEASE
     Route: 065
     Dates: start: 2011
  31. PACKED RED BLOOD CELLS [Concomitant]
     Active Substance: HUMAN RED BLOOD CELL
     Route: 065
     Dates: start: 20171220, end: 20171220
  32. BUDESONIDE. [Concomitant]
     Active Substance: BUDESONIDE
     Indication: ASTHMA
     Route: 065
     Dates: start: 201712
  33. ENTRESTO [Concomitant]
     Active Substance: SACUBITRIL\VALSARTAN
     Indication: CARDIAC FAILURE
     Route: 065
     Dates: start: 20180103
  34. ENOXAPARIN [Concomitant]
     Active Substance: ENOXAPARIN
     Indication: THROMBOSIS PROPHYLAXIS
     Route: 065
     Dates: start: 20171115, end: 20171116
  35. OXYCODONE [Concomitant]
     Active Substance: OXYCODONE
     Indication: PAIN
     Route: 065
     Dates: start: 20171205, end: 20171205
  36. MAGNESIUM SULFATE. [Concomitant]
     Active Substance: MAGNESIUM SULFATE
     Dosage: 20 MMOL IN 100ML NORMAL SALINE
     Route: 065
     Dates: start: 20171206, end: 20171206
  37. RAMIPRIL. [Concomitant]
     Active Substance: RAMIPRIL
     Indication: HYPERTENSION
     Route: 065
     Dates: start: 20180129
  38. POLATUZUMAB VEDOTIN. [Suspect]
     Active Substance: POLATUZUMAB VEDOTIN
     Indication: DIFFUSE LARGE B-CELL LYMPHOMA
     Dosage: ON DAY 1 OF EACH 21 DAYS CYCLE FOR UPTO 18 WEEKS?MOST RECENT DOSE (161 MG ONCE IN 3 WEEKS) PRIOR TO
     Route: 042
     Dates: start: 20171116
  39. PROLIA [Concomitant]
     Active Substance: DENOSUMAB
     Indication: OSTEOPOROSIS
     Route: 065
     Dates: start: 2011
  40. PACKED RED BLOOD CELLS [Concomitant]
     Active Substance: HUMAN RED BLOOD CELL
     Indication: ANAEMIA
     Route: 065
     Dates: start: 20171202, end: 20171202
  41. SODIUM BICARBONATE. [Concomitant]
     Active Substance: SODIUM BICARBONATE
     Route: 065
     Dates: start: 20171116
  42. FLUCONAZOLE. [Concomitant]
     Active Substance: FLUCONAZOLE
     Indication: OESOPHAGEAL CANDIDIASIS
     Route: 065
     Dates: start: 20171222, end: 20171231
  43. BISOPROLOL [Concomitant]
     Active Substance: BISOPROLOL
     Indication: HYPERTENSION
     Route: 065
     Dates: start: 20180129
  44. RIVAROXABAN [Concomitant]
     Active Substance: RIVAROXABAN
     Indication: ANTICOAGULANT THERAPY
     Route: 065
     Dates: start: 20141029, end: 20171130
  45. OXAZEPAM. [Concomitant]
     Active Substance: OXAZEPAM
     Indication: ANXIETY
     Route: 065
     Dates: start: 1993
  46. NEO?B12 [Concomitant]
     Indication: ASTHMA
     Route: 065
     Dates: start: 1994
  47. NEO?B12 [Concomitant]
     Indication: VITAMIN SUPPLEMENTATION
  48. BACTRIM DS [Concomitant]
     Active Substance: SULFAMETHOXAZOLE\TRIMETHOPRIM
     Dosage: FOR PNEUMOCYSTIS PNEUMONIA INFECTION PROPHYLAXIS
     Route: 065
     Dates: start: 20171120
  49. HEPARIN [Concomitant]
     Active Substance: HEPARIN SODIUM
     Indication: THROMBOSIS PROPHYLAXIS
     Route: 065
     Dates: start: 20171115, end: 20171116
  50. MAXOLON [Concomitant]
     Active Substance: METOCLOPRAMIDE HYDROCHLORIDE
     Indication: NAUSEA
     Route: 065
     Dates: start: 20171116
  51. BACTRIM DS [Concomitant]
     Active Substance: SULFAMETHOXAZOLE\TRIMETHOPRIM
     Indication: ANTIFUNGAL PROPHYLAXIS
     Dosage: FOR PNEUMOCYSTIS JIROVECI PNEUMONIA PROPHYLAXIS
     Route: 065
     Dates: start: 20171116
  52. ALLOPURINOL. [Concomitant]
     Active Substance: ALLOPURINOL
     Dosage: PREVENTION OF TUMOUR LYSIS
     Route: 065
     Dates: start: 20171116
  53. NYSTATIN. [Concomitant]
     Active Substance: NYSTATIN
     Indication: ORAL CANDIDIASIS
     Route: 065
     Dates: start: 20171220
  54. ENTRESTO [Concomitant]
     Active Substance: SACUBITRIL\VALSARTAN
     Route: 065
     Dates: start: 201612, end: 20171130
  55. FILGRASTIM [Concomitant]
     Active Substance: FILGRASTIM
     Indication: NEUTROPENIA
     Route: 065
     Dates: start: 20171203, end: 20171205
  56. MAGNESIUM SULFATE. [Concomitant]
     Active Substance: MAGNESIUM SULFATE
     Indication: HYPOMAGNESAEMIA
     Dosage: 10 MMOL IN 100ML NORMAL SALINE
     Route: 065
     Dates: start: 20171130, end: 20171201
  57. PHENYLEPHRINE [Concomitant]
     Active Substance: PHENYLEPHRINE HYDROCHLORIDE
     Indication: VISUAL IMPAIRMENT
     Dosage: EYE EXAMINATION FOR INTERMITTENT, BILATERAL VISUAL DISTURBANCE
     Route: 065
     Dates: start: 20171227, end: 20171227
  58. TROPICAMIDE. [Concomitant]
     Active Substance: TROPICAMIDE
     Dosage: EYE EXAMINATION FOR INTERMITTENT, BILATERAL VISUAL DISTURBANCE
     Route: 065
     Dates: start: 20171227, end: 20171227
  59. NORMAL SALINE [Concomitant]
     Active Substance: SODIUM CHLORIDE
  60. TROPICAMIDE. [Concomitant]
     Active Substance: TROPICAMIDE
     Indication: VISUAL IMPAIRMENT
  61. RITUXIMAB. [Suspect]
     Active Substance: RITUXIMAB
     Indication: DIFFUSE LARGE B-CELL LYMPHOMA
     Dosage: ?1 IN 21 DAYS (ON DAY 1 OF CYCLES 1?6)?MOST RECENT DOSE PRIOR TO SAE (770 MG, FREQUENCY: OTHER): 07/
     Route: 042
     Dates: start: 20171116
  62. RIVAROXABAN [Concomitant]
     Active Substance: RIVAROXABAN
     Dosage: TO PREVENT BLOOD CLOTS
     Route: 065
     Dates: start: 20171206
  63. CRESTOR [Concomitant]
     Active Substance: ROSUVASTATIN CALCIUM
     Indication: HYPERCHOLESTEROLAEMIA
     Route: 065
     Dates: start: 2014
  64. DULOXETINE. [Concomitant]
     Active Substance: DULOXETINE
     Indication: FIBROMYALGIA
     Route: 065
     Dates: start: 20171130
  65. PARACETAMOL [Concomitant]
     Active Substance: ACETAMINOPHEN
     Indication: PAIN

REACTIONS (6)
  - Dyspnoea [Recovered/Resolved]
  - Mucosal inflammation [Recovering/Resolving]
  - Fluid overload [Recovered/Resolved]
  - Acute kidney injury [Recovered/Resolved]
  - Hypotension [Not Recovered/Not Resolved]
  - Hypoxia [Recovered/Resolved]

NARRATIVE: CASE EVENT DATE: 20171210
